FAERS Safety Report 8237752-9 (Version None)
Quarter: 2012Q1

REPORT INFORMATION
  Report Type: 
  Country: None (occurrence: None)
  Receive Date: 20120323
  Receipt Date: 20120315
  Transmission Date: 20120608
  Serious: Yes (Other)
  Sender: FDA-Public Use
  Company Number: 2012-026585

PATIENT

DRUGS (2)
  1. DOMEBORO POWDER PACKETS (ALUMINIUM SULFATE + CALCIUM ACETATE) CUTANEOU [Suspect]
     Indication: ULCER
     Dosage: TOPICAL
     Route: 061
  2. DOMEBORO POWDER PACKETS (ALUMINIUM SULFATE + CALCIUM ACETATE) CUTANEOU [Suspect]
     Indication: SKIN EXFOLIATION
     Dosage: TOPICAL
     Route: 061

REACTIONS (1)
  - DRY SKIN [None]
